FAERS Safety Report 5877107-5 (Version None)
Quarter: 2008Q3

REPORT INFORMATION
  Report Type: 
  Country: None (occurrence: None)
  Receive Date: 20080910
  Receipt Date: 20080829
  Transmission Date: 20090109
  Serious: No
  Sender: FDA-Public Use
  Company Number: IN-AVENTIS-200818153GDDC

PATIENT
  Age: 30 Year
  Sex: Female
  Weight: 56 kg

DRUGS (2)
  1. ARAVA [Suspect]
     Indication: RHEUMATOID ARTHRITIS
     Route: 048
     Dates: start: 20061127, end: 20080731
  2. FOLIC ACID [Suspect]
     Route: 048
     Dates: start: 20061127

REACTIONS (1)
  - DRUG EXPOSURE DURING PREGNANCY [None]
